FAERS Safety Report 9156931 (Version 1)
Quarter: 2013Q1

REPORT INFORMATION
  Report Type: Spontaneous
  Country: US (occurrence: None)
  Receive Date: 20130212
  Receipt Date: 20130212
  Transmission Date: 20140127
  Serious: No
  Sender: FDA-Public Use
  Company Number: A1011075A

PATIENT
  Sex: Female

DRUGS (4)
  1. SODIUM FLUORIDE POTASSIUM NITRATE [Suspect]
     Indication: SENSITIVITY OF TEETH
     Route: 004
  2. STRONTIUM CHLORIDE [Suspect]
     Indication: SENSITIVITY OF TEETH
     Route: 004
  3. OMEPRAZOLE [Concomitant]
  4. BISMUTH SUBASLICYLATE [Concomitant]

REACTIONS (5)
  - Mental impairment [None]
  - Drug administration error [None]
  - Gastrooesophageal reflux disease [None]
  - Nausea [None]
  - Diarrhoea [None]
